FAERS Safety Report 5115884-1 (Version None)
Quarter: 2006Q3

REPORT INFORMATION
  Report Type: 
  Country: None (occurrence: None)
  Receive Date: 20060927
  Receipt Date: 20060714
  Transmission Date: 20061208
  Serious: Yes (Death, Life-Threatening, Hospitalization, Other)
  Sender: FDA-Public Use
  Company Number: JP-BRISTOL-MYERS SQUIBB COMPANY-13442793

PATIENT
  Age: 46 Year
  Sex: Male

DRUGS (11)
  1. ENDOXAN [Suspect]
     Indication: LYMPHOMA
     Dates: start: 20050202
  2. LASTET [Suspect]
     Indication: LYMPHOMA
     Route: 041
     Dates: start: 20050412, end: 20050414
  3. IFOMIDE [Suspect]
     Indication: LYMPHOMA
     Route: 041
     Dates: start: 20050412, end: 20050414
  4. PARAPLATIN [Suspect]
     Indication: LYMPHOMA
     Route: 041
     Dates: start: 20050412, end: 20050412
  5. STOCRIN [Suspect]
     Indication: ACQUIRED IMMUNODEFICIENCY SYNDROME
     Route: 048
     Dates: start: 20050309, end: 20050428
  6. ZERIT [Suspect]
     Indication: ACQUIRED IMMUNODEFICIENCY SYNDROME
     Route: 048
     Dates: start: 20050309, end: 20050428
  7. ONCOVIN [Suspect]
     Indication: LYMPHOMA
     Route: 042
     Dates: start: 20050201, end: 20050101
  8. ADRIAMYCIN PFS [Suspect]
     Indication: LYMPHOMA
     Route: 042
     Dates: start: 20050201, end: 20050101
  9. ZEFIX [Suspect]
     Indication: ACQUIRED IMMUNODEFICIENCY SYNDROME
     Route: 048
     Dates: start: 20050309, end: 20050428
  10. PREDONINE [Concomitant]
     Indication: LYMPHOMA
     Dates: start: 20050228, end: 20050101
  11. DECADRON [Concomitant]
     Indication: LYMPHOMA
     Route: 041
     Dates: start: 20050412, end: 20050414

REACTIONS (15)
  - ATRIAL FIBRILLATION [None]
  - BRAIN STEM HAEMORRHAGE [None]
  - CEREBRAL HAEMORRHAGE [None]
  - COMA [None]
  - DISEASE PROGRESSION [None]
  - HEPATIC ENCEPHALOPATHY [None]
  - HEPATIC FAILURE [None]
  - HYPOCOAGULABLE STATE [None]
  - IMMUNODEFICIENCY [None]
  - JAUNDICE [None]
  - MALIGNANT NEOPLASM PROGRESSION [None]
  - PANCYTOPENIA [None]
  - PLATELET COUNT DECREASED [None]
  - SOMNOLENCE [None]
  - WHITE BLOOD CELL COUNT DECREASED [None]
